FAERS Safety Report 8818616 (Version 1)
Quarter: 2012Q4

REPORT INFORMATION
  Report Type: Spontaneous
  Country: US (occurrence: None)
  Receive Date: 20121002
  Receipt Date: 20121002
  Transmission Date: 20130627
  Serious: Yes (Hospitalization)
  Sender: FDA-Public Use
  Company Number: 139637

PATIENT
  Age: 14 Month
  Sex: Male

DRUGS (1)
  1. CARBOPLATIN [Suspect]
     Indication: RETINOBLASTOMA UNILATERAL
     Dosage: 30 mg intra-arterial chemotherapy (iac)

REACTIONS (3)
  - Arterial occlusive disease [None]
  - Retinal ischaemia [None]
  - Chorioretinal disorder [None]
